FAERS Safety Report 7897440-5 (Version None)
Quarter: 2011Q4

REPORT INFORMATION
  Report Type: 
  Country: None (occurrence: None)
  Receive Date: 20111107
  Receipt Date: 20111029
  Transmission Date: 20120403
  Serious: Yes (Other)
  Sender: FDA-Public Use
  Company Number: US-JNJFOC-20111101312

PATIENT
  Sex: Female
  Weight: 54.43 kg

DRUGS (2)
  1. TOPAMAX [Suspect]
     Indication: GRAND MAL CONVULSION
     Route: 048
  2. XANAX [Concomitant]
     Indication: PANIC ATTACK
     Route: 048

REACTIONS (13)
  - WEIGHT DECREASED [None]
  - PARAESTHESIA [None]
  - HYPOAESTHESIA [None]
  - MOBILITY DECREASED [None]
  - VISUAL IMPAIRMENT [None]
  - WEIGHT INCREASED [None]
  - LETHARGY [None]
  - INSOMNIA [None]
  - INAPPROPRIATE SCHEDULE OF DRUG ADMINISTRATION [None]
  - FEELING ABNORMAL [None]
  - HYPERHIDROSIS [None]
  - PALPITATIONS [None]
  - DYSARTHRIA [None]
